FAERS Safety Report 12526249 (Version 1)
Quarter: 2016Q3

REPORT INFORMATION
  Report Type: Spontaneous
  Country: None (occurrence: None)
  Receive Date: 20160701
  Receipt Date: 20160701
  Transmission Date: 20161109
  Serious: No
  Sender: FDA-Public Use
  Company Number: None

PATIENT
  Sex: Female

DRUGS (1)
  1. MORPHINE INJECTION CAPE DRUGS [Suspect]
     Active Substance: MORPHINE HYDROCHLORIDE

REACTIONS (2)
  - Medication error [None]
  - Product sterility lacking [None]

NARRATIVE: CASE EVENT DATE: 20160622
